FAERS Safety Report 7769096-3 (Version None)
Quarter: 2011Q3

REPORT INFORMATION
  Report Type: 
  Country: None (occurrence: None)
  Receive Date: 20110922
  Receipt Date: 20101213
  Transmission Date: 20111222
  Serious: No
  Sender: FDA-Public Use
  Company Number: US-ASTRAZENECA-2008UW14881

PATIENT
  Age: 51 Year
  Sex: Female
  Weight: 95.3 kg

DRUGS (20)
  1. SEROQUEL [Suspect]
     Dosage: 100 MG-300 MG
     Route: 048
     Dates: start: 20060921
  2. SEROQUEL [Suspect]
     Dosage: 100 MG-300 MG
     Route: 048
     Dates: start: 20060921
  3. WELLBUTRIN [Concomitant]
     Dates: start: 20060921
  4. METFORMIN [Concomitant]
     Dates: start: 20060921, end: 20061023
  5. SEROQUEL [Suspect]
     Indication: DEPRESSION
     Route: 048
     Dates: start: 20010301, end: 20071201
  6. SPIRIVA [Concomitant]
     Dates: start: 20060921
  7. SEROQUEL [Suspect]
     Indication: ANXIETY
     Route: 048
     Dates: start: 20010301, end: 20071201
  8. SEROQUEL [Suspect]
     Indication: BIPOLAR DISORDER
     Route: 048
     Dates: start: 20010301, end: 20071201
  9. SEROQUEL [Suspect]
     Route: 048
     Dates: start: 20031124, end: 20071221
  10. SEROQUEL [Suspect]
     Dosage: 100 MG-300 MG
     Route: 048
     Dates: start: 20060921
  11. CRESTOR [Concomitant]
     Dates: start: 20060921
  12. ALBUTEROL [Concomitant]
     Dates: start: 20060921
  13. NEURONTIN [Concomitant]
     Dosage: BID
     Dates: start: 20060921
  14. PROZAC [Concomitant]
     Dates: start: 20070326
  15. SEROQUEL [Suspect]
     Route: 048
     Dates: start: 20031124, end: 20071221
  16. DARVOCET-N 50 [Concomitant]
     Dosage: 1-2 Q4-Q6 HR
  17. XANAX [Concomitant]
     Route: 048
     Dates: start: 20060921
  18. HYDROCODONE [Concomitant]
     Indication: PAIN
     Dosage: 5/500 1-2 PRN Q4-Q6 HR
     Dates: start: 20060921
  19. SEROQUEL [Suspect]
     Route: 048
     Dates: start: 20031124, end: 20071221
  20. FLEXERIL [Concomitant]
     Dosage: 5 MG 1-2 BID PRN
     Dates: start: 20060921

REACTIONS (11)
  - ARTHROPATHY [None]
  - BACK PAIN [None]
  - DIABETIC COMPLICATION [None]
  - BLOOD CHOLESTEROL INCREASED [None]
  - GENERAL PHYSICAL HEALTH DETERIORATION [None]
  - DIABETES MELLITUS [None]
  - WEIGHT INCREASED [None]
  - HYPERLIPIDAEMIA [None]
  - BACK DISORDER [None]
  - TYPE 2 DIABETES MELLITUS [None]
  - ARTHRITIS [None]
